FAERS Safety Report 24594855 (Version 2)
Quarter: 2024Q4

REPORT INFORMATION
  Report Type: Report from Study
  Country: US (occurrence: US)
  Receive Date: 20241108
  Receipt Date: 20241203
  Transmission Date: 20250114
  Serious: Yes (Other)
  Sender: ALEXION PHARMACEUTICALS
  Company Number: US-AstraZeneca-CH-00739393A

PATIENT

DRUGS (1)
  1. ULTOMIRIS [Suspect]
     Active Substance: RAVULIZUMAB-CWVZ
     Indication: Atypical haemolytic uraemic syndrome
     Dosage: UNK
     Route: 065

REACTIONS (8)
  - Cerebrovascular accident [Unknown]
  - Atypical haemolytic uraemic syndrome [Unknown]
  - Immune thrombocytopenia [Unknown]
  - Blood creatinine increased [Unknown]
  - Blood urea increased [Unknown]
  - Platelet count increased [Unknown]
  - Immune system disorder [Unknown]
  - Blood disorder [Unknown]
